FAERS Safety Report 6021782-1 (Version None)
Quarter: 2008Q4

REPORT INFORMATION
  Report Type: 
  Country: None (occurrence: None)
  Receive Date: 20081229
  Receipt Date: 20081222
  Transmission Date: 20090506
  Serious: Yes (Other)
  Sender: FDA-Public Use
  Company Number: US-AVENTIS-200818622US

PATIENT
  Sex: Female

DRUGS (2)
  1. LANTUS [Suspect]
     Route: 058
     Dates: start: 20081001, end: 20081001
  2. LANTUS [Suspect]
     Dosage: DOSE: UNK
     Route: 058

REACTIONS (2)
  - BLOOD GLUCOSE INCREASED [None]
  - COMA [None]
